FAERS Safety Report 24707056 (Version 1)
Quarter: 2024Q4

REPORT INFORMATION
  Report Type: Spontaneous
  Country: CN (occurrence: CN)
  Receive Date: 20241206
  Receipt Date: 20241206
  Transmission Date: 20250115
  Serious: Yes (Hospitalization, Other)
  Sender: MERCK
  Company Number: CN-009507513-2411CHN012439

PATIENT
  Age: 75 Year
  Sex: Female
  Weight: 63.5 kg

DRUGS (5)
  1. JANUMET [Suspect]
     Active Substance: METFORMIN HYDROCHLORIDE\SITAGLIPTIN PHOSPHATE
     Indication: Blood glucose increased
     Dosage: 1 TABLET, BID
     Route: 048
     Dates: start: 20241001, end: 20241119
  2. JANUMET [Suspect]
     Active Substance: METFORMIN HYDROCHLORIDE\SITAGLIPTIN PHOSPHATE
     Dosage: 1 TABLET, BID
     Route: 048
     Dates: start: 20241120
  3. INSULIN ASPART\INSULIN DEGLUDEC [Suspect]
     Active Substance: INSULIN ASPART\INSULIN DEGLUDEC
     Indication: Blood glucose increased
     Dosage: 14 DOSAGE FORM, BID (IN THE MORNING AND EVENING, IMMEDIATELY BEFORE MEALS)
     Route: 058
     Dates: start: 20241001, end: 20241119
  4. ACARBOSE [Suspect]
     Active Substance: ACARBOSE
     Indication: Blood glucose increased
     Dosage: 50 MG, BID
     Route: 048
     Dates: start: 20241001, end: 20241119
  5. ACARBOSE [Suspect]
     Active Substance: ACARBOSE
     Dosage: 50 MILLIGRAM, THREE TIMES A DAY
     Route: 048
     Dates: start: 20241120

REACTIONS (2)
  - Hypoglycaemic coma [Recovering/Resolving]
  - Blood glucose increased [Unknown]

NARRATIVE: CASE EVENT DATE: 20241119
